FAERS Safety Report 5058349-8 (Version None)
Quarter: 2006Q2

REPORT INFORMATION
  Report Type: 
  Country: None (occurrence: None)
  Receive Date: 20060626
  Receipt Date: 20060315
  Transmission Date: 20061013
  Serious: Yes (Other)
  Sender: FDA-Public Use
  Company Number: US-JNJFOC-20060304360

PATIENT
  Sex: Female

DRUGS (1)
  1. ULTRAM SR [Suspect]
     Indication: DRUG USE FOR UNKNOWN INDICATION
     Dosage: 100 MG, 8 IN 1 DAY, ORAL
     Route: 048
     Dates: start: 20060301

REACTIONS (3)
  - FLUSHING [None]
  - HEART RATE INCREASED [None]
  - OVERDOSE [None]
